FAERS Safety Report 25210224 (Version 1)
Quarter: 2025Q2

REPORT INFORMATION
  Report Type: Spontaneous
  Country: CN (occurrence: CN)
  Receive Date: 20250417
  Receipt Date: 20250417
  Transmission Date: 20250717
  Serious: Yes (Life-Threatening, Hospitalization, Other)
  Sender: Kenvue
  Company Number: CN-KENVUE-20250403206

PATIENT

DRUGS (1)
  1. CHILDRENS MOTRIN [Suspect]
     Active Substance: IBUPROFEN
     Indication: Abdominal pain upper
     Route: 048
     Dates: start: 20250328, end: 20250328

REACTIONS (5)
  - Liver injury [Recovering/Resolving]
  - Syncope [Recovering/Resolving]
  - Drug hypersensitivity [Recovering/Resolving]
  - Gastritis [Recovering/Resolving]
  - Hyperglycaemia [Recovering/Resolving]

NARRATIVE: CASE EVENT DATE: 20250301
